FAERS Safety Report 26008965 (Version 1)
Quarter: 2025Q4

REPORT INFORMATION
  Report Type: Spontaneous
  Country: EU (occurrence: EU)
  Receive Date: 20251106
  Receipt Date: 20251106
  Transmission Date: 20260119
  Serious: Yes (Hospitalization, Other)
  Sender: CELLTRION
  Company Number: EU-SAMSUNG BIOEPIS-SB-2025-35544

PATIENT

DRUGS (2)
  1. ADALIMUMAB [Suspect]
     Active Substance: ADALIMUMAB
     Indication: Crohn^s disease
     Dosage: INITIATION: 160-80-40 MG SC (SUBCUTANEOUS);
     Route: 058
     Dates: start: 202502, end: 202505
  2. ADALIMUMAB [Suspect]
     Active Substance: ADALIMUMAB

REACTIONS (8)
  - Crohn^s disease [Recovering/Resolving]
  - Pelvic mass [Recovering/Resolving]
  - Optic neuritis [Unknown]
  - Inflammation [Recovering/Resolving]
  - Pelvic fluid collection [Not Recovered/Not Resolved]
  - Epstein-Barr virus antibody positive [Unknown]
  - Abscess [Unknown]
  - Off label use [Unknown]

NARRATIVE: CASE EVENT DATE: 20250501
